FAERS Safety Report 7728380-X (Version None)
Quarter: 2011Q3

REPORT INFORMATION
  Report Type: 
  Country: None (occurrence: None)
  Receive Date: 20110905
  Receipt Date: 20110824
  Transmission Date: 20111222
  Serious: Yes (Hospitalization)
  Sender: FDA-Public Use
  Company Number: PHHY2011DE75955

PATIENT
  Age: 57 Year
  Sex: Female

DRUGS (4)
  1. ZOLEDRONOC ACID [Suspect]
     Indication: OSTEOPOROSIS
     Dosage: 5 MG, UNK
     Route: 042
  2. LEVOTHYROXINE SODIUM [Concomitant]
     Dosage: 100 UG, UNK
  3. PROCHLORPERAZINE [Concomitant]
  4. POLYSPECTRAN TROPFEN [Concomitant]

REACTIONS (1)
  - CEREBROVASCULAR ACCIDENT [None]
